FAERS Safety Report 10248701 (Version 1)
Quarter: 2014Q2

REPORT INFORMATION
  Report Type: Spontaneous
  Country: CN (occurrence: None)
  Receive Date: 20140618
  Receipt Date: 20140618
  Transmission Date: 20141212
  Serious: Yes (Other)
  Sender: FDA-Public Use
  Company Number: NSR_01566_2014

PATIENT
  Age: 3 Month
  Sex: Male

DRUGS (1)
  1. PROPRANOLOL [Suspect]
     Indication: HAEMANGIOMA
     Dosage: 2 MG/MG 2X {2 MG KG ^-1 D^ -1}

REACTIONS (4)
  - Cyanosis [None]
  - Peripheral coldness [None]
  - Heart rate decreased [None]
  - Blood pressure decreased [None]
